FAERS Safety Report 9433520 (Version 2)
Quarter: 2013Q3

REPORT INFORMATION
  Report Type: Spontaneous
  Country: US (occurrence: US)
  Receive Date: 20130731
  Receipt Date: 20130827
  Transmission Date: 20140515
  Serious: Yes (Disabling, Other)
  Sender: FDA-Public Use
  Company Number: US-009507513-1307USA016494

PATIENT
  Age: 64 Year
  Sex: Male
  Weight: 87.7 kg

DRUGS (1)
  1. JANUVIA [Suspect]
     Indication: TYPE 2 DIABETES MELLITUS
     Dosage: TOTAL DAILY DOSE 50 MG
     Route: 048
     Dates: start: 20120207, end: 20130725

REACTIONS (2)
  - Pancreatic carcinoma [Not Recovered/Not Resolved]
  - Abdominal pain [Not Recovered/Not Resolved]
